FAERS Safety Report 19037072 (Version 1)
Quarter: 2021Q1

REPORT INFORMATION
  Report Type: Spontaneous
  Country: US (occurrence: US)
  Receive Date: 20210322
  Receipt Date: 20210322
  Transmission Date: 20210420
  Serious: No
  Sender: FDA-Public Use
  Company Number: US-MICRO LABS LIMITED-ML2021-00603

PATIENT
  Sex: Female

DRUGS (1)
  1. DORZOLAMIDE/TIMOLOL [Suspect]
     Active Substance: DORZOLAMIDE\TIMOLOL
     Dosage: 22.3 MG / 6.8 MG PER ML
     Route: 047

REACTIONS (2)
  - Eye irritation [Unknown]
  - Eye pain [Unknown]
